FAERS Safety Report 8980312 (Version 1)
Quarter: 2012Q4

REPORT INFORMATION
  Report Type: Report from Study
  Country: FR (occurrence: FR)
  Receive Date: 20121221
  Receipt Date: 20121221
  Transmission Date: 20130627
  Serious: Yes (Death, Hospitalization)
  Sender: FDA-Public Use
  Company Number: FR-009507513-1203FRA00086

PATIENT
  Age: 74 Year
  Sex: Female
  Weight: 75 kg

DRUGS (12)
  1. SITAGLIPTIN PHOSPHATE [Suspect]
     Indication: TYPE 2 DIABETES MELLITUS
     Dosage: 100 mg, qd
     Route: 048
     Dates: start: 20091009, end: 20101012
  2. METFORMIN [Suspect]
     Indication: TYPE 2 DIABETES MELLITUS
     Dosage: 1000 mg, tid
     Route: 048
     Dates: start: 20091009, end: 20101012
  3. METFORMIN [Suspect]
     Dosage: 1000 mg, bid
     Route: 048
     Dates: start: 20101012
  4. VICTOZA [Suspect]
     Indication: TYPE 2 DIABETES MELLITUS
     Dosage: 1.2 mg, qd
     Dates: start: 20101012, end: 20110113
  5. VICTOZA [Suspect]
     Dosage: 1.8 mg, qd
     Dates: start: 20110114
  6. GLUCOR [Suspect]
     Indication: TYPE 2 DIABETES MELLITUS
     Dosage: 100 mg, qd
     Route: 048
     Dates: start: 20110810, end: 20111109
  7. GLUCOR [Suspect]
     Dosage: 150 mg, qd
     Route: 048
     Dates: start: 20111110
  8. EFFEXOR [Concomitant]
     Dosage: 2 DF, qd
  9. XANAX [Concomitant]
     Dosage: 1 DF, qd
  10. ASASANTINE [Concomitant]
     Dosage: 1 DF, qd
  11. ALDACTONE TABLETS [Concomitant]
     Dosage: 1 DF, qd
  12. NOCTAMIDE [Concomitant]
     Dosage: 1 DF, qd

REACTIONS (2)
  - Pleural mesothelioma [Recovered/Resolved]
  - Cerebrovascular accident [Fatal]
